FAERS Safety Report 8911244 (Version 1)
Quarter: 2012Q4

REPORT INFORMATION
  Report Type: 
  Country: US (occurrence: US)
  Receive Date: 20121116
  Receipt Date: 20121116
  Transmission Date: 20130627
  Serious: No
  Sender: FDA-Public Use
  Company Number: US-GLAXOSMITHKLINE-A0993689A

PATIENT
  Age: 51 Year
  Sex: Female

DRUGS (11)
  1. VOTRIENT [Suspect]
     Indication: PRODUCT USED FOR UNKNOWN INDICATION
     Dosage: 800MG Per day
     Route: 048
  2. HYDROCHLOROTHIAZIDE [Concomitant]
  3. POTASSIUM [Concomitant]
  4. MUCINEX D [Concomitant]
  5. PRILOSEC [Concomitant]
  6. REGLAN [Concomitant]
  7. SENOKOT [Concomitant]
  8. WELLBUTRIN [Concomitant]
  9. ZOFRAN [Concomitant]
  10. ZYPREXA [Concomitant]
  11. MORPHINE SULFATE [Concomitant]

REACTIONS (2)
  - Fatigue [Unknown]
  - Weight decreased [Unknown]
